FAERS Safety Report 8852236 (Version 1)
Quarter: 2012Q4

REPORT INFORMATION
  Report Type: 
  Country: US (occurrence: US)
  Receive Date: 20121022
  Receipt Date: 20121022
  Transmission Date: 20130627
  Serious: No
  Sender: FDA-Public Use
  Company Number: US-009507513-1208USA004688

PATIENT
  Age: 62 Year
  Sex: Male

DRUGS (4)
  1. PROVENTIL [Suspect]
     Dosage: two puffs, every 4-6 hours as needed
     Route: 048
     Dates: start: 201207
  2. ZETIA [Concomitant]
     Route: 048
  3. NORVASC [Concomitant]
  4. XANAX [Concomitant]
     Dosage: UNK

REACTIONS (2)
  - Myalgia [Not Recovered/Not Resolved]
  - Pain in extremity [Not Recovered/Not Resolved]
